FAERS Safety Report 6124100-3 (Version None)
Quarter: 2009Q1

REPORT INFORMATION
  Report Type: 
  Country: None (occurrence: None)
  Receive Date: 20090319
  Receipt Date: 20090309
  Transmission Date: 20090719
  Serious: Yes (Hospitalization)
  Sender: FDA-Public Use
  Company Number: BR-ABBOTT-09P-020-0561647-00

PATIENT
  Sex: Female
  Weight: 57 kg

DRUGS (3)
  1. AKINETON [Suspect]
     Indication: SALIVARY HYPERSECRETION
     Route: 048
     Dates: start: 20090306
  2. AMITRIPTYLINE [Concomitant]
     Indication: SALIVARY HYPERSECRETION
  3. RIVOTRIL [Concomitant]
     Indication: BIPOLAR DISORDER
     Route: 048
     Dates: start: 19940101

REACTIONS (1)
  - HYPERSENSITIVITY [None]
